FAERS Safety Report 8510459-6 (Version None)
Quarter: 2012Q3

REPORT INFORMATION
  Report Type: 
  Country: None (occurrence: None)
  Receive Date: 20120715
  Receipt Date: 20120629
  Transmission Date: 20120928
  Serious: Yes (Other)
  Sender: FDA-Public Use
  Company Number: CHPA2012US014791

PATIENT
  Age: 56 Year
  Sex: Female

DRUGS (3)
  1. EXCEDRIN (MIGRAINE) [Suspect]
     Indication: HEADACHE
     Dosage: ^SOME CRUSHED UP^
     Route: 048
     Dates: start: 20020101, end: 20090101
  2. EXCEDRIN TENSION HEADACHE CAPLETS [Suspect]
     Indication: HEADACHE
     Dosage: ^SOME CRUSHED UP^
     Route: 048
     Dates: start: 20090101
  3. EXCEDRIN SINUS HEADACHE CAPLETS [Suspect]
     Indication: SINUS HEADACHE
     Dosage: ^SOME CRUSHED UP^
     Route: 048
     Dates: start: 20090902, end: 20090906

REACTIONS (9)
  - GASTROINTESTINAL INFLAMMATION [None]
  - GASTROINTESTINAL SOUNDS ABNORMAL [None]
  - INTESTINAL ULCER [None]
  - DYSPEPSIA [None]
  - HAEMATOCHEZIA [None]
  - GASTROINTESTINAL MUCOCOELE [None]
  - GASTRIC MUCOSA ERYTHEMA [None]
  - WRONG TECHNIQUE IN DRUG USAGE PROCESS [None]
  - CONSTIPATION [None]
